FAERS Safety Report 7443099-0 (Version None)
Quarter: 2011Q2

REPORT INFORMATION
  Report Type: 
  Country: None (occurrence: None)
  Receive Date: 20110428
  Receipt Date: 20110415
  Transmission Date: 20111010
  Serious: Yes (Death)
  Sender: FDA-Public Use
  Company Number: US-GENENTECH-313485

PATIENT

DRUGS (2)
  1. XOLAIR [Suspect]
  2. XOLAIR [Suspect]
     Indication: PRODUCT USED FOR UNKNOWN INDICATION
     Route: 064

REACTIONS (2)
  - STILLBIRTH [None]
  - DRUG EXPOSURE DURING PREGNANCY [None]
